FAERS Safety Report 12890673 (Version 1)
Quarter: 2016Q4

REPORT INFORMATION
  Report Type: Spontaneous
  Country: US (occurrence: US)
  Receive Date: 20161027
  Receipt Date: 20161027
  Transmission Date: 20170207
  Serious: No
  Sender: FDA-Public Use
  Company Number: US-JAZZ-2016-US-015825

PATIENT
  Age: 58 Year
  Sex: Female
  Weight: 90.7 kg

DRUGS (20)
  1. XYREM [Suspect]
     Active Substance: SODIUM OXYBATE
     Indication: NARCOLEPSY
     Dosage: 2.25 G, BID
     Route: 048
     Dates: start: 201607, end: 2016
  2. XYREM [Suspect]
     Active Substance: SODIUM OXYBATE
     Indication: CATAPLEXY
     Dosage: DOSE ADJUSTMENTS
     Route: 048
     Dates: start: 2016, end: 2016
  3. XYREM [Suspect]
     Active Substance: SODIUM OXYBATE
     Dosage: 3.25 G, BID
     Route: 048
     Dates: start: 2016
  4. SERTRALINE HCL [Concomitant]
     Active Substance: SERTRALINE HYDROCHLORIDE
  5. PERPHENAZINE. [Concomitant]
     Active Substance: PERPHENAZINE
  6. ADVAIR HFA [Concomitant]
     Active Substance: FLUTICASONE PROPIONATE\SALMETEROL XINAFOATE
  7. OXYBUTYNIN [Concomitant]
     Active Substance: OXYBUTYNIN
  8. CENTRUM SILVER [Concomitant]
     Active Substance: MINERALS\VITAMINS
  9. MAXALT [Concomitant]
     Active Substance: RIZATRIPTAN BENZOATE
  10. PROVIGIL [Concomitant]
     Active Substance: MODAFINIL
  11. ABILIFY [Concomitant]
     Active Substance: ARIPIPRAZOLE
  12. DEPAKOTE [Concomitant]
     Active Substance: DIVALPROEX SODIUM
     Indication: SEIZURE
  13. ALBUTEROL HFA [Concomitant]
     Active Substance: ALBUTEROL SULFATE
  14. CYANOCOBALAMIN. [Concomitant]
     Active Substance: CYANOCOBALAMIN
  15. ZOLOFT [Concomitant]
     Active Substance: SERTRALINE HYDROCHLORIDE
     Indication: BIPOLAR DISORDER
  16. METFORMIN [Concomitant]
     Active Substance: METFORMIN HYDROCHLORIDE
     Indication: DIABETES MELLITUS
  17. NAPROSYN [Concomitant]
     Active Substance: NAPROXEN
  18. ASCORBIC ACID. [Concomitant]
     Active Substance: ASCORBIC ACID
  19. FERROUS SULFATE. [Concomitant]
     Active Substance: FERROUS SULFATE
  20. NEURONTIN [Concomitant]
     Active Substance: GABAPENTIN

REACTIONS (4)
  - Dysarthria [Unknown]
  - Fatigue [Not Recovered/Not Resolved]
  - Contusion [Unknown]
  - Eye contusion [Unknown]

NARRATIVE: CASE EVENT DATE: 2016
